FAERS Safety Report 7545389-X (Version None)
Quarter: 2011Q2

REPORT INFORMATION
  Report Type: 
  Country: None (occurrence: None)
  Receive Date: 20110607
  Receipt Date: 20110525
  Transmission Date: 20111010
  Serious: Yes (Hospitalization, Other)
  Sender: FDA-Public Use
  Company Number: 2011-1708

PATIENT
  Age: 18 Year
  Sex: Male
  Weight: 56.7 kg

DRUGS (1)
  1. INCRELEX [Suspect]
     Indication: BODY HEIGHT BELOW NORMAL
     Dosage: 50 UNITS (50 UNITS, 1 IN 1 D) SUBCUTANEOUS
     Route: 058
     Dates: start: 20101221, end: 20110520

REACTIONS (2)
  - HEPATITIS [None]
  - HEPATOMEGALY [None]
